FAERS Safety Report 16578116 (Version 2)
Quarter: 2019Q3

REPORT INFORMATION
  Report Type: Spontaneous
  Country: CN (occurrence: CN)
  Receive Date: 20190716
  Receipt Date: 20190723
  Transmission Date: 20191004
  Serious: Yes (Hospitalization, Other)
  Sender: FDA-Public Use
  Company Number: CN-BRACCO-2019CN03394

PATIENT
  Age: 50 Year
  Sex: Female

DRUGS (1)
  1. MULTIHANCE [Suspect]
     Active Substance: GADOBENATE DIMEGLUMINE
     Indication: ANGIOGRAM
     Dosage: 15 ML, SINGLE
     Route: 042
     Dates: start: 20190706, end: 20190706

REACTIONS (4)
  - Cyanosis [Recovered/Resolved]
  - Discomfort [Recovered/Resolved]
  - Pallor [Recovered/Resolved]
  - Hypotension [Recovered/Resolved]

NARRATIVE: CASE EVENT DATE: 20190706
